FAERS Safety Report 8997675 (Version 1)
Quarter: 2013Q1

REPORT INFORMATION
  Report Type: Spontaneous
  Country: HR (occurrence: HR)
  Receive Date: 20130104
  Receipt Date: 20130104
  Transmission Date: 20140127
  Serious: Yes (Hospitalization)
  Sender: FDA-Public Use
  Company Number: HR-TEVA-378047ISR

PATIENT
  Age: 16 Year
  Sex: Male

DRUGS (1)
  1. VOLTAREN [Suspect]
     Indication: OROPHARYNGEAL PAIN
     Dosage: 1 DOSAGE FORMS DAILY;
     Route: 030
     Dates: start: 20071223, end: 20071223

REACTIONS (5)
  - Toxic epidermal necrolysis [Recovered/Resolved with Sequelae]
  - Blindness [Not Recovered/Not Resolved]
  - Rash [Unknown]
  - Pruritus [Unknown]
  - Dry eye [Not Recovered/Not Resolved]
